FAERS Safety Report 13117645 (Version 4)
Quarter: 2017Q1

REPORT INFORMATION
  Report Type: Spontaneous
  Country: US (occurrence: US)
  Receive Date: 20170116
  Receipt Date: 20170331
  Transmission Date: 20170428
  Serious: Yes (Hospitalization)
  Sender: FDA-Public Use
  Company Number: US-GLAXOSMITHKLINE-US2017004493

PATIENT
  Age: 77 Year
  Sex: Female

DRUGS (2)
  1. CARVEDILOL. [Suspect]
     Active Substance: CARVEDILOL
     Indication: HEART RATE IRREGULAR
     Route: 048
  2. COREG [Suspect]
     Active Substance: CARVEDILOL
     Indication: HEART RATE IRREGULAR
     Dosage: 6.25 MG, BID
     Route: 048
     Dates: start: 2010

REACTIONS (9)
  - Dysstasia [Recovered/Resolved]
  - Urinary incontinence [Unknown]
  - Pollakiuria [Recovered/Resolved]
  - Dehydration [Recovered/Resolved]
  - Drug dose omission [Unknown]
  - Product quality issue [Unknown]
  - Dizziness [Recovered/Resolved]
  - Swelling face [Recovered/Resolved]
  - Product use issue [Unknown]

NARRATIVE: CASE EVENT DATE: 20170112
